FAERS Safety Report 6137878-X (Version None)
Quarter: 2009Q1

REPORT INFORMATION
  Report Type: 
  Country: None (occurrence: None)
  Receive Date: 20090331
  Receipt Date: 20090317
  Transmission Date: 20090719
  Serious: Yes (Hospitalization)
  Sender: FDA-Public Use
  Company Number: JP-ELI_LILLY_AND_COMPANY-JP200806006159

PATIENT
  Sex: Male
  Weight: 62 kg

DRUGS (9)
  1. PEMETREXED [Suspect]
     Indication: PLEURAL MESOTHELIOMA MALIGNANT
     Dosage: 790 MG, OTHER
     Route: 042
     Dates: start: 20071126, end: 20080110
  2. CISPLATIN [Suspect]
     Indication: PLEURAL MESOTHELIOMA MALIGNANT
     Dosage: 115 MG, OTHER
     Route: 042
     Dates: start: 20071126, end: 20080110
  3. PANVITAN [Concomitant]
     Dosage: 1 G, DAILY (1/D)
     Route: 048
     Dates: start: 20071113, end: 20080213
  4. HYDROXOCOBALAMIN ACETATE [Concomitant]
     Dosage: 1 MG, OTHER
     Route: 030
     Dates: start: 20071113, end: 20071113
  5. HYDROXOCOBALAMIN ACETATE [Concomitant]
     Dosage: 1 MG, OTHER
     Route: 030
     Dates: start: 20080128, end: 20080128
  6. DIHYDROCODEINE PHOSPHATE [Concomitant]
     Indication: COUGH
     Dosage: 3 G, DAILY (1/D)
     Route: 048
     Dates: start: 20071028
  7. LOXONIN [Concomitant]
     Indication: CANCER PAIN
     Dosage: 3 D/F, DAILY (1/D)
     Route: 048
     Dates: start: 20071025
  8. CYTOTEC [Concomitant]
     Indication: PROPHYLAXIS
     Dosage: 3 D/F, DAILY (1/D)
     Route: 048
     Dates: start: 20071025
  9. NASEA [Concomitant]
     Indication: PROPHYLAXIS
     Dosage: 1 D/F, DAILY (1/D)
     Route: 048
     Dates: start: 20071127

REACTIONS (3)
  - ANOREXIA [None]
  - FATIGUE [None]
  - WEIGHT DECREASED [None]
